FAERS Safety Report 16465431 (Version 2)
Quarter: 2019Q3

REPORT INFORMATION
  Report Type: Spontaneous
  Country: US (occurrence: US)
  Receive Date: 20190621
  Receipt Date: 20190717
  Transmission Date: 20191004
  Serious: Yes (Other)
  Sender: FDA-Public Use
  Company Number: US-ASTRAZENECA-2019SE88238

PATIENT
  Age: 863 Month
  Sex: Male
  Weight: 99.8 kg

DRUGS (45)
  1. PRILOSEC [Suspect]
     Active Substance: OMEPRAZOLE MAGNESIUM
     Indication: GASTROOESOPHAGEAL REFLUX DISEASE
     Route: 048
     Dates: start: 20141231
  2. PRILOSEC [Suspect]
     Active Substance: OMEPRAZOLE MAGNESIUM
     Indication: GASTROOESOPHAGEAL REFLUX DISEASE
     Route: 048
     Dates: start: 20100421, end: 20141219
  3. NEURONTIN [Concomitant]
     Active Substance: GABAPENTIN
  4. GLUCOVANCE [Concomitant]
     Active Substance: GLYBURIDE\METFORMIN HYDROCHLORIDE
  5. TERAZOSIN [Concomitant]
     Active Substance: TERAZOSIN HYDROCHLORIDE
  6. NEXIUM 24HR [Suspect]
     Active Substance: ESOMEPRAZOLE MAGNESIUM
     Route: 048
  7. PRILOSEC [Suspect]
     Active Substance: OMEPRAZOLE MAGNESIUM
     Indication: GASTROOESOPHAGEAL REFLUX DISEASE
     Route: 048
  8. KLOR-CON [Concomitant]
     Active Substance: POTASSIUM CHLORIDE
  9. AMARYL [Concomitant]
     Active Substance: GLIMEPIRIDE
  10. TERAZOSIN [Concomitant]
     Active Substance: TERAZOSIN HYDROCHLORIDE
  11. GABAPENTIN. [Concomitant]
     Active Substance: GABAPENTIN
  12. MINOCYCLINE [Concomitant]
     Active Substance: MINOCYCLINE HYDROCHLORIDE
  13. PRILOSEC [Suspect]
     Active Substance: OMEPRAZOLE MAGNESIUM
     Indication: GASTROOESOPHAGEAL REFLUX DISEASE
     Route: 048
     Dates: start: 20100422, end: 20141103
  14. PRILOSEC [Suspect]
     Active Substance: OMEPRAZOLE MAGNESIUM
     Indication: GASTROOESOPHAGEAL REFLUX DISEASE
     Dosage: GENERIC
     Route: 065
     Dates: start: 20100421, end: 20141219
  15. PREVACID [Suspect]
     Active Substance: LANSOPRAZOLE
     Route: 065
  16. ASPIRIN. [Concomitant]
     Active Substance: ASPIRIN
  17. LORAZEPAM. [Concomitant]
     Active Substance: LORAZEPAM
  18. RANITIDINE. [Concomitant]
     Active Substance: RANITIDINE
     Indication: ANTACID THERAPY
     Route: 065
     Dates: start: 20100901, end: 20120221
  19. METOLAZONE. [Concomitant]
     Active Substance: METOLAZONE
     Indication: HYPERTENSION
  20. NEXIUM [Suspect]
     Active Substance: ESOMEPRAZOLE MAGNESIUM
     Route: 048
  21. LISINOPRIL. [Concomitant]
     Active Substance: LISINOPRIL
  22. PLAVIX [Concomitant]
     Active Substance: CLOPIDOGREL BISULFATE
  23. FUROSEMIDE. [Concomitant]
     Active Substance: FUROSEMIDE
  24. RESTORIL [Concomitant]
     Active Substance: TEMAZEPAM
  25. AMBIEN [Concomitant]
     Active Substance: ZOLPIDEM TARTRATE
  26. METOPROLOL TARTRATE. [Concomitant]
     Active Substance: METOPROLOL TARTRATE
  27. HUMALOG [Concomitant]
     Active Substance: INSULIN LISPRO
  28. RANITIDINE. [Concomitant]
     Active Substance: RANITIDINE
  29. AMPICILLIN [Concomitant]
     Active Substance: AMPICILLIN
  30. HYDRALAZINE [Concomitant]
     Active Substance: HYDRALAZINE HYDROCHLORIDE
  31. GLIMEPIRIDE. [Concomitant]
     Active Substance: GLIMEPIRIDE
  32. CEPHALEXIN. [Concomitant]
     Active Substance: CEPHALEXIN
  33. PRILOSEC [Suspect]
     Active Substance: OMEPRAZOLE MAGNESIUM
     Indication: GASTROOESOPHAGEAL REFLUX DISEASE
     Route: 048
  34. PROTONIX [Suspect]
     Active Substance: PANTOPRAZOLE SODIUM
     Route: 065
  35. LANTUS [Concomitant]
     Active Substance: INSULIN GLARGINE
  36. ZAROXOLYN [Concomitant]
     Active Substance: METOLAZONE
  37. MAGNESIUM [Concomitant]
     Active Substance: MAGNESIUM
  38. SIMVASTATIN. [Concomitant]
     Active Substance: SIMVASTATIN
  39. NIFEDIPINE. [Concomitant]
     Active Substance: NIFEDIPINE
  40. LISINOPRIL. [Concomitant]
     Active Substance: LISINOPRIL
     Indication: HYPERTENSION
  41. NOVOLOG [Concomitant]
     Active Substance: INSULIN ASPART
  42. METOLAZONE. [Concomitant]
     Active Substance: METOLAZONE
  43. PRADAXA [Concomitant]
     Active Substance: DABIGATRAN ETEXILATE MESYLATE
  44. TERAZOSIN [Concomitant]
     Active Substance: TERAZOSIN HYDROCHLORIDE
     Indication: PROSTATOMEGALY
  45. GABAPENTIN. [Concomitant]
     Active Substance: GABAPENTIN
     Indication: PAIN MANAGEMENT
     Route: 065
     Dates: start: 20140903, end: 20141020

REACTIONS (4)
  - End stage renal disease [Unknown]
  - Nephrogenic anaemia [Unknown]
  - Acute kidney injury [Not Recovered/Not Resolved]
  - Chronic kidney disease [Not Recovered/Not Resolved]

NARRATIVE: CASE EVENT DATE: 201501
